FAERS Safety Report 17488481 (Version 1)
Quarter: 2020Q1

REPORT INFORMATION
  Report Type: Spontaneous
  Country: US (occurrence: US)
  Receive Date: 20200302
  Receipt Date: 20200302
  Transmission Date: 20200409
  Serious: Yes (Life-Threatening)
  Sender: FDA-Public Use
  Company Number: None

PATIENT
  Age: 67 Year
  Sex: Female
  Weight: 74.25 kg

DRUGS (4)
  1. VITAMIN D3 [Concomitant]
     Active Substance: CHOLECALCIFEROL
  2. ATENOLOL. [Suspect]
     Active Substance: ATENOLOL
     Indication: HYPERTENSION
     Dates: start: 20021101, end: 20200106
  3. OMEGA 3 [Concomitant]
     Active Substance: OMEGA-3 FATTY ACIDS
  4. FLAXSEED [Concomitant]
     Active Substance: FLAX SEED

REACTIONS (5)
  - Dyspnoea [None]
  - Choking [None]
  - Secretion discharge [None]
  - Feeding disorder [None]
  - Insomnia [None]

NARRATIVE: CASE EVENT DATE: 20191101
